FAERS Safety Report 24783232 (Version 1)
Quarter: 2024Q4

REPORT INFORMATION
  Report Type: Spontaneous
  Country: US (occurrence: US)
  Receive Date: 20241227
  Receipt Date: 20241227
  Transmission Date: 20250115
  Serious: Yes (Other)
  Sender: NOVO NORDISK
  Company Number: US-NOVOPROD-1341783

PATIENT
  Age: 34 Week
  Weight: 2.02 kg

DRUGS (5)
  1. INSULIN DEGLUDEC [Suspect]
     Active Substance: INSULIN DEGLUDEC
     Indication: Type 1 diabetes mellitus
     Dosage: UNK
     Route: 064
  2. INSULIN LISPRO [Suspect]
     Active Substance: INSULIN LISPRO
     Indication: Type 1 diabetes mellitus
     Dosage: UNK
     Route: 064
  3. HUMULIN R [Concomitant]
     Active Substance: INSULIN HUMAN
     Indication: Insulin resistance
     Dosage: 210 IU, QD(210 UNITS/ DAY IN DIVIDED DOSES)
     Route: 064
  4. HUMALOG [Concomitant]
     Active Substance: INSULIN LISPRO
     Indication: Insulin resistance
     Dosage: UNK
     Route: 064
  5. BETAMETHASONE [Concomitant]
     Active Substance: BETAMETHASONE
     Indication: Pre-eclampsia
     Dosage: 2 DOSES OF 12 MG
     Route: 064

REACTIONS (2)
  - Premature baby [Recovered/Resolved]
  - Foetal exposure during pregnancy [Recovered/Resolved]
